FAERS Safety Report 21238722 (Version 2)
Quarter: 2022Q4

REPORT INFORMATION
  Report Type: Spontaneous
  Country: US (occurrence: US)
  Receive Date: 20220822
  Receipt Date: 20221019
  Transmission Date: 20230113
  Serious: No
  Sender: FDA-Public Use
  Company Number: US-BIOVITRUM-2022US09771

PATIENT
  Age: 0 Year
  Sex: Female

DRUGS (1)
  1. SYNAGIS [Suspect]
     Active Substance: PALIVIZUMAB
     Indication: Premature baby
     Dosage: 68.40 (UNIT NOT REPORTED) MONTHLY
     Dates: start: 20220513

REACTIONS (1)
  - Nasal congestion [Unknown]

NARRATIVE: CASE EVENT DATE: 20220813
